FAERS Safety Report 7937644-6 (Version None)
Quarter: 2011Q4

REPORT INFORMATION
  Report Type: 
  Country: None (occurrence: None)
  Receive Date: 20111123
  Receipt Date: 20111109
  Transmission Date: 20120403
  Serious: Yes (Hospitalization, Other)
  Sender: FDA-Public Use
  Company Number: PHHY2011FR102381

PATIENT
  Sex: Female
  Weight: 60 kg

DRUGS (151)
  1. MODOPAR [Suspect]
     Dosage: 125 MG,1/DAY PLUS 1 IF NEEDED, 62.5 MG, 5 TABS/DAY
     Dates: start: 20090406
  2. MODOPAR [Suspect]
     Dosage: 125 MG, 1 TAB IN EVENING
     Dates: start: 20090927
  3. MODOPAR [Suspect]
     Dosage: 125 MG, UNK
     Dates: start: 20100727
  4. MODOPAR [Suspect]
     Dosage: 62.5 MG, 5 TABS/DAY
     Dates: start: 20090101
  5. PERGOLIDE MESYLATE [Suspect]
     Dosage: 0.5 MG, TID
     Dates: start: 20030905
  6. EFFEXOR [Concomitant]
     Dosage: 50 MG, QD
     Dates: start: 20080105
  7. EFFEXOR [Concomitant]
     Dosage: 50 MG, BID
     Dates: start: 20080130
  8. EFFEXOR [Concomitant]
     Dosage: 75 MG, UNK
     Dates: start: 20090602
  9. XANAX [Concomitant]
     Dosage: 0.5 MG, 5 TAB/DAY
     Dates: start: 20090602
  10. XANAX [Concomitant]
     Dosage: 0.5 MG, TID
     Dates: start: 20040925
  11. IMOVANE [Concomitant]
     Dosage: 2 DF, QHS
     Dates: start: 20020219
  12. ATHYMIL [Concomitant]
     Dosage: 30 MG, UNK
     Dates: start: 20090512
  13. ATHYMIL [Concomitant]
     Dosage: 30 MG, UNK
     Dates: start: 20090602
  14. ATHYMIL [Concomitant]
     Dosage: 30 MG, UNK
     Dates: start: 20091112
  15. ECONAZOLE NITRATE [Concomitant]
     Dosage: UNK UKN, UNK
     Dates: start: 20060918
  16. ZOLOFT [Concomitant]
     Dosage: 50 MG, BID
     Dates: start: 20040915
  17. STALEVO 100 [Suspect]
     Dosage: 1 DF, QID
     Route: 048
     Dates: start: 20080304
  18. STALEVO 100 [Suspect]
     Dosage: UNK UKN, UNK
     Dates: end: 20101101
  19. MODOPAR [Suspect]
     Dosage: UNK UKN, UNK
     Dates: start: 19950101
  20. MODOPAR [Suspect]
     Dosage: 125 MG  TWICE PER DAY, MODOPAR 62.5 MG AT 1 CAPSULE 4 TIMES PER DAY DAILY
     Dates: start: 20080206
  21. MODOPAR [Suspect]
     Dosage: 125 MG, QID
     Route: 048
     Dates: start: 20080625
  22. MODOPAR [Suspect]
     Dosage: 125 MG,ONE SCATTERED TAB PER DAY, 62.5 MG 3 TAB/DAY
     Dates: start: 20100302
  23. MODOPAR [Suspect]
     Dosage: 250 MG, TID, 62.5 MG 1 TABLET MID DAY
     Dates: start: 20020219
  24. EFFEXOR [Concomitant]
     Dosage: 50 MG, BID
     Dates: start: 20020813
  25. EFFEXOR [Concomitant]
     Dosage: UNK UKN, UNK
     Dates: start: 20030905
  26. XANAX [Concomitant]
     Dosage: 0.5 MG, TID
     Dates: start: 20050123
  27. LOXAPINE HCL [Concomitant]
     Dosage: 15 DRP, TID
     Dates: start: 20080130
  28. ATARAX [Concomitant]
     Dosage: 25 MG, TID
     Dates: start: 20080125
  29. LORAZEPAM [Concomitant]
     Dosage: 2.5 MG, UNK
     Dates: start: 20090209
  30. ELUDRIL [Concomitant]
     Dosage: UNK UKN, UNK
  31. STALEVO 100 [Suspect]
     Dosage: 5 DF, (5 TABS PER DAY0
     Dates: start: 20081212
  32. MODOPAR [Suspect]
     Indication: PARKINSON'S DISEASE
     Dosage: 125 MG, QD
  33. MODOPAR [Suspect]
     Dosage: 125 MG, BID (1 IN THE MORNING, 1 IN THE EVENING)
     Dates: start: 20090302
  34. MODOPAR [Suspect]
     Dosage: 125 MG, 1 TAB IN EVENING
     Dates: start: 20090602
  35. MODOPAR [Suspect]
     Dosage: 62.5 MG 5 TIMES PER DAY
     Dates: start: 20090505
  36. MODOPAR [Suspect]
     Dosage: 125 MG AT 1 TABLET 2 TO 3 TIMES PER DAY, MODOPAR 62.5 MG AT 1 TABLET 4 TIMES PER
     Route: 048
  37. MODOPAR [Suspect]
     Dosage: 250 MG, BID 62.5 MGG 1TAB/DAY
     Dates: start: 20020813
  38. MODOPAR [Suspect]
     Dosage: 62.5 MG, 5 TABS/DAY
     Dates: start: 20090216
  39. PERGOLIDE MESYLATE [Suspect]
     Dosage: 1 MG, UNK
     Dates: start: 20050123, end: 20060321
  40. EFFEXOR [Concomitant]
     Dosage: 75 MG, BID
     Dates: start: 20090917
  41. EFFEXOR [Concomitant]
     Dosage: 75 MG, BID
     Dates: start: 20081125
  42. XANAX [Concomitant]
     Dosage: 0.25 MG, TID
     Dates: start: 20080130
  43. XANAX [Concomitant]
     Dosage: 0.5 MG, 5/ DAY
     Dates: start: 20090205
  44. XANAX [Concomitant]
     Dosage: 0.25 MG, TID
     Dates: start: 20020813
  45. XANAX [Concomitant]
     Dosage: 0.25 MG, HALF TABLET 5 TIMES A DAY
     Dates: start: 20080715
  46. IMOVANE [Concomitant]
     Dosage: 1 DF, BID
     Dates: start: 20020322
  47. ATHYMIL [Concomitant]
     Dosage: 30 MG, UNK
     Dates: start: 20090917
  48. KETOCONAZOLE [Concomitant]
     Dosage: UNK UKN, UNK
     Dates: start: 20060918
  49. ATARAX [Concomitant]
     Dosage: 5 DF, UNK
     Dates: start: 20090406
  50. ATARAX [Concomitant]
     Dosage: 5 DF, UNK
     Dates: start: 20090415
  51. PRAZEPAM [Concomitant]
     Dosage: 10 MG, UNK
     Dates: start: 20090803
  52. COMTAN [Suspect]
     Indication: PARKINSON'S DISEASE
     Dosage: 1 DF, (1 TAB IN MORNING)
     Route: 048
     Dates: start: 20050123, end: 20050301
  53. STALEVO 100 [Suspect]
     Indication: PARKINSON'S DISEASE
     Dosage: 1 DF, 1 TABLET 5 TIMES PER DAY
     Route: 048
  54. STALEVO 100 [Suspect]
     Dosage: 1 DF, 1 TABLET 5 TIMES PER DAY
     Route: 048
     Dates: start: 20080530
  55. STALEVO 100 [Suspect]
     Dosage: 5 DF, (5 TABS PER DAY0
     Dates: start: 20080827
  56. MODOPAR [Suspect]
     Dosage: 0.5 DF, FIVE TIME DAILY
     Dates: start: 20070830
  57. MODOPAR [Suspect]
     Dosage: 125 MG, 1 TAB PER DAY
     Dates: start: 20090725
  58. MODOPAR [Suspect]
     Dosage: 125 MG, 1 TAB IN EVENING
     Dates: start: 20091102
  59. MODOPAR [Suspect]
     Dosage: 250 MG  AT 1 CAPSULE 3 TIMES PER DAY, MODOPAR 125 MG AT 1 TABLET IN THE MORNING, MODOPAR 62.5
     Dates: start: 20070510
  60. MODOPAR [Suspect]
     Dosage: 250 MG, TID
     Dates: start: 20020219
  61. MODOPAR [Suspect]
     Dosage: 250 MG, BID, 62.5 MG BID
     Dates: start: 20020322
  62. EFFEXOR [Concomitant]
     Dosage: 50 MG, TID
     Dates: start: 20050331
  63. EFFEXOR [Concomitant]
     Dosage: 50 MG, QD
     Dates: start: 20060622
  64. EFFEXOR [Concomitant]
     Dosage: 37.5 MG, TID
     Dates: start: 20070109
  65. EFFEXOR [Concomitant]
     Dosage: 75 MG, BID
     Dates: start: 20080625
  66. EFFEXOR [Concomitant]
     Dosage: 50 MG, 5 TABS/ DAY
     Dates: start: 20080715
  67. XANAX [Concomitant]
     Dosage: 0.5 MG, UNK
     Dates: start: 20080530
  68. XANAX [Concomitant]
     Dosage: 0.5 MG, 5 TAB/DAY
     Dates: start: 20091019
  69. XANAX [Concomitant]
     Dosage: 0.5 MG, TID
     Dates: start: 20041104
  70. IMOVANE [Concomitant]
     Dosage: 1 DF, BID
     Dates: start: 20020813
  71. IMOVANE [Concomitant]
     Dosage: 1 DF, UNK
     Dates: start: 20080715
  72. ATHYMIL [Concomitant]
     Dosage: 10 MG, 5 TAB PER DAY
     Dates: start: 20090205
  73. ATARAX [Concomitant]
     Dosage: 25 MG, UNK
     Dates: start: 20090209
  74. LEVONORGESTREL AND ETHINYL ESTRADIOL [Concomitant]
     Dosage: UNK UKN, UNK
  75. STALEVO 100 [Suspect]
     Dosage: 5 DF, 5 TAB/DAY
     Dates: start: 20091102
  76. MODOPAR [Suspect]
     Dosage: 250 MG AT 1 CAPSULE 3 TIMES PER DAY, MODOPAR 125 MG AT 1 TABLET IN THE MORNING, MODOPAR 62.5
     Dates: start: 20060622
  77. MODOPAR [Suspect]
     Dosage: 62.5 MG, QID
     Dates: start: 20080304
  78. MODOPAR [Suspect]
     Dosage: 125 MG, 1 TO 3 TIMES PER DAY
     Route: 048
     Dates: start: 20080304
  79. MODOPAR [Suspect]
     Dosage: 125 MG, QD  MODOPAR 62.5 MG AT 5 TIMES PER DAY
     Dates: start: 20080915
  80. MODOPAR [Suspect]
     Dosage: 125 MG  IN EVENING, 62.5 MG 5 TAB/DAY
     Dates: start: 20090917
  81. MODOPAR [Suspect]
     Dosage: 250 MG, TID 62.5 MG 1 TAB/DAY
     Dates: start: 20041214
  82. PERGOLIDE MESYLATE [Suspect]
     Dosage: 1 MG, TID
     Dates: start: 20041021
  83. PRAMIPEXOLE DIHYDROCHLORIDE [Suspect]
     Dosage: 0.7 MG, TID
     Dates: start: 20060622
  84. EFFEXOR [Concomitant]
     Dosage: 50 MG, UNK
     Dates: start: 20081029
  85. EFFEXOR [Concomitant]
     Dosage: 50 MG, BID
     Dates: start: 20020219
  86. XANAX [Concomitant]
     Dosage: 0.5 MG, 5 TAB/DAY
     Dates: start: 20090406
  87. XANAX [Concomitant]
     Dosage: 0.25 MG, TID
     Dates: start: 20020322
  88. XANAX [Concomitant]
     Dosage: 0.5 MG, TID
     Dates: start: 20041214
  89. ACETAMINOPHEN AND TRAMADOL HCL [Concomitant]
     Dosage: 1 DF, TID
     Dates: start: 20060622
  90. IMOVANE [Concomitant]
     Dosage: 7.5 MG, QHS
  91. ATHYMIL [Concomitant]
     Dosage: 30 MG, QD
     Dates: start: 20080130
  92. ATHYMIL [Concomitant]
     Dosage: 50 MG, UNK
     Dates: start: 20090725
  93. CEFUROXIME [Concomitant]
     Dosage: 250 MG, BID
  94. LYSOPAINE [Concomitant]
     Dosage: UNK UKN, UNK
  95. ATARAX [Concomitant]
     Dosage: 4 DF, UNK
     Dates: start: 20090602
  96. DEPAKOTE [Concomitant]
     Dosage: 250 MG, BID
     Dates: start: 20090512
  97. DEPAKOTE [Concomitant]
     Dosage: 250 MG, (2 IN MORNING, 2 IN EVENING)
     Dates: start: 20090519
  98. INTETRIX [Concomitant]
     Dosage: 4 DF, UNK
  99. HEPTAMINOL [Concomitant]
     Dosage: 30 DRP, TID
     Dates: start: 20030408
  100. GAVISCON                                /GFR/ [Concomitant]
     Dosage: UNK UKN, UNK
     Dates: start: 20040915
  101. COMTAN [Suspect]
     Dosage: 0.5 TABLET 5 TIMES PER DAY
     Route: 048
     Dates: start: 20060629
  102. COMTAN [Suspect]
     Dosage: 0.5 TABLET FIVE TIMES PER DAY
     Route: 048
     Dates: start: 20080105
  103. STALEVO 100 [Suspect]
     Dosage: 5 DF, 5 TAB/DAY
     Dates: start: 20090725
  104. STALEVO 100 [Suspect]
     Dosage: 5 DF, 5 TAB/DAY
     Dates: start: 20090818
  105. STALEVO 100 [Suspect]
     Dosage: 5 DF, 5 TAB/DAY
     Dates: start: 20091019
  106. STALEVO 100 [Suspect]
     Dosage: 6 DF, PER DAY
     Dates: start: 20100302
  107. STALEVO 100 [Suspect]
     Dosage: 5 DF, (5 TABS PER DAY0
     Dates: start: 20090105
  108. MODOPAR [Suspect]
     Dosage: 125 MG, 1 TAB PER DAY
     Dates: start: 20090818
  109. MODOPAR [Suspect]
     Dosage: 250 MG AT 1 CAPSULE 5 TIMES PER DAY
     Dates: start: 20070109
  110. MODOPAR [Suspect]
     Dosage: UNK UKN, QID
     Route: 048
     Dates: start: 20080530
  111. MODOPAR [Suspect]
     Dosage: 250 MG, TID 62.5 MG 1 TAB/DAY
     Dates: start: 20040901
  112. MODOPAR [Suspect]
     Dosage: 250 MG, TID
     Dates: start: 20041104
  113. MODOPAR [Suspect]
     Dosage: 62.5 MG, 4 TABS/DAY
     Dates: start: 20080715
  114. PERGOLIDE MESYLATE [Suspect]
     Dosage: UNK UKN, UNK
     Dates: start: 20030201
  115. EFFEXOR [Concomitant]
     Dosage: 50 MG, BID
     Dates: start: 20020222
  116. EFFEXOR [Concomitant]
     Dosage: 50 MG, BID
     Dates: start: 20040915
  117. XANAX [Concomitant]
     Dosage: 0.25 MG, TID
     Dates: start: 20030905
  118. XANAX [Concomitant]
     Dosage: 0.25 MG,4 T/DAY
     Dates: start: 20040728
  119. NECYRANE [Concomitant]
     Dosage: UNK UKN, UNK
     Dates: start: 20060313
  120. STILNOX                                 /FRA/ [Concomitant]
     Dosage: 1 DF, UNK
     Dates: start: 20040915
  121. AMOXICILLIN TRIHYDRATE [Concomitant]
     Dosage: 1 G, BID
     Dates: start: 20041117
  122. COMTAN [Suspect]
     Dosage: 0.5 TABLET 3 TIMES PER DAY
     Route: 048
     Dates: start: 20071205
  123. STALEVO 100 [Suspect]
     Dosage: 5 DF, 5 TABLETS PER DAY
     Dates: start: 20090415
  124. STALEVO 100 [Suspect]
     Dosage: 5 DF,PER DAY
     Dates: start: 20091219
  125. STALEVO 100 [Suspect]
     Dosage: 5 DF, (5 TABS PER DAY0
     Dates: start: 20090216
  126. MODOPAR [Suspect]
     Dosage: 125 MG, SCATTERED TAB IF NEEDED, 62.5 MG 5 TABS/D
     Dates: start: 20090818
  127. MODOPAR [Suspect]
     Dosage: 250 MG, UNK
     Dates: start: 20030905
  128. PRAMIPEXOLE DIHYDROCHLORIDE [Suspect]
     Dosage: UNK
     Dates: start: 20060321
  129. XANAX [Concomitant]
     Dosage: 0.5 MG, TID
     Dates: start: 20050331
  130. XANAX [Concomitant]
     Dosage: 0.5 MG, 5 TABS/DAY
     Dates: start: 20090512
  131. IBUPROFEN [Concomitant]
     Dosage: 400 MG, UNK
  132. MODOPAR [Suspect]
     Dosage: 125 MG, UNK
     Dates: start: 20090430
  133. MODOPAR [Suspect]
     Dosage: 250 MG  AT 1 CAPSULE 3 TIMES PER DAY
     Dates: start: 20071205
  134. MODOPAR [Suspect]
     Dosage: 62.5 MG, QID
     Dates: start: 20080530
  135. MODOPAR [Suspect]
     Dosage: 125 MG, MODOPAR 62.5 MG
     Dates: start: 20081029
  136. MODOPAR [Suspect]
     Dosage: UNK DF, BIDSCATTERED TAB BID, MODOPAR 62.5, 5 TABS/DAY
     Dates: start: 20090725
  137. MODOPAR [Suspect]
     Dosage: 125 MG,  IN EVENING, 62.5 MG 5 TABS PER DAY
     Dates: start: 20091102
  138. MODOPAR [Suspect]
     Dosage: 62.5 MG, 5 TABS/DAY
     Dates: start: 20081115
  139. EFFEXOR [Concomitant]
     Dosage: 75 MG, TID
     Dates: start: 20090209
  140. EFFEXOR [Concomitant]
     Dosage: 75 MG, BID
     Dates: start: 20110406
  141. EFFEXOR [Concomitant]
     Dosage: 75 MG, BID
     Dates: start: 20090818
  142. EFFEXOR [Concomitant]
     Dosage: 75 MG, BID
     Dates: start: 20091019
  143. XANAX [Concomitant]
     Dosage: 0.5 MG, QID
  144. XANAX [Concomitant]
     Dosage: 0.5 MG, TID
     Dates: start: 20080625
  145. XANAX [Concomitant]
     Dosage: 0.5 MG, 5 TAB/DAY
     Dates: start: 20090725
  146. ACETAMINOPHEN AND TRAMADOL HCL [Concomitant]
     Dosage: 1 DF, QD
     Dates: start: 20080105
  147. ATHYMIL [Concomitant]
     Dosage: 30 MG, UNK
     Dates: start: 20091219
  148. CARBOCISTEINE [Concomitant]
     Dosage: UNK UKN, UNK
  149. ACETAMINOPHEN [Concomitant]
     Dosage: 500 MG, UNK
     Dates: start: 20090602
  150. ACETAMINOPHEN [Concomitant]
     Dosage: 1000 MG, TID
     Dates: start: 20041214
  151. DEPAKOTE [Concomitant]
     Dosage: 500 MG, BID
     Dates: start: 20091019

REACTIONS (30)
  - PSYCHOTIC BEHAVIOUR [None]
  - COMPULSIVE SHOPPING [None]
  - MUSCULOSKELETAL PAIN [None]
  - FALL [None]
  - NECK PAIN [None]
  - SUICIDAL IDEATION [None]
  - MUSCLE RIGIDITY [None]
  - TREMOR [None]
  - C-REACTIVE PROTEIN INCREASED [None]
  - PSYCHOMOTOR HYPERACTIVITY [None]
  - SUICIDE ATTEMPT [None]
  - DEPRESSED MOOD [None]
  - DYSTHYMIC DISORDER [None]
  - DYSPNOEA [None]
  - AGITATION [None]
  - HYPOMANIA [None]
  - DEPRESSION [None]
  - AKINESIA [None]
  - CORNEAL REFLEX DECREASED [None]
  - BACK PAIN [None]
  - MUSCLE SPASMS [None]
  - AMIMIA [None]
  - BALANCE DISORDER [None]
  - WEIGHT INCREASED [None]
  - CHROMATURIA [None]
  - THYMUS DISORDER [None]
  - RED BLOOD CELL SEDIMENTATION RATE INCREASED [None]
  - ABNORMAL BEHAVIOUR [None]
  - NEUROSIS [None]
  - IRRITABILITY [None]
